FAERS Safety Report 11996366 (Version 1)
Quarter: 2016Q1

REPORT INFORMATION
  Report Type: Spontaneous
  Country: GB (occurrence: GB)
  Receive Date: 20160203
  Receipt Date: 20160203
  Transmission Date: 20160526
  Serious: Yes (Other)
  Sender: FDA-Public Use
  Company Number: PHHY2016GB010543

PATIENT
  Age: 26 Year
  Sex: Female
  Weight: 106 kg

DRUGS (2)
  1. VENTOLIN [Concomitant]
     Active Substance: ALBUTEROL SULFATE
     Indication: PRODUCT USED FOR UNKNOWN INDICATION
     Route: 065
  2. COCODAMOL [Suspect]
     Active Substance: ACETAMINOPHEN\CODEINE PHOSPHATE
     Indication: ANALGESIC THERAPY
     Dosage: 30/500
     Route: 048

REACTIONS (1)
  - Heart rate increased [Recovered/Resolved]
